FAERS Safety Report 6120235-X (Version None)
Quarter: 2009Q1

REPORT INFORMATION
  Report Type: 
  Country: None (occurrence: None)
  Receive Date: 20090312
  Receipt Date: 20090302
  Transmission Date: 20090719
  Serious: Yes (Hospitalization)
  Sender: FDA-Public Use
  Company Number: CERZ-1000541

PATIENT
  Age: 69 Year
  Sex: Male
  Weight: 71 kg

DRUGS (1)
  1. CEREZYME [Suspect]
     Indication: GAUCHER'S DISEASE
     Dosage: 4600 U, Q2W, INTRAVENOUS
     Route: 042
     Dates: start: 20040413

REACTIONS (4)
  - CHILLS [None]
  - GASTRIC DISORDER [None]
  - MUSCLE TIGHTNESS [None]
  - THROAT TIGHTNESS [None]
